FAERS Safety Report 18020685 (Version 1)
Quarter: 2020Q3

REPORT INFORMATION
  Report Type: Spontaneous
  Country: IT (occurrence: IT)
  Receive Date: 20200714
  Receipt Date: 20200714
  Transmission Date: 20201103
  Serious: Yes (Hospitalization)
  Sender: FDA-Public Use
  Company Number: IT-PFIZER INC-2020267557

PATIENT
  Age: 23 Year
  Sex: Female

DRUGS (2)
  1. TAVOR (LORAZEPAM) [Suspect]
     Active Substance: LORAZEPAM
     Dosage: 60 DROP
     Route: 048
  2. ENTUMIN [Suspect]
     Active Substance: CLOTHIAPINE
     Dosage: UNK
     Route: 048

REACTIONS (4)
  - Sopor [Recovered/Resolved]
  - Intentional self-injury [Recovered/Resolved]
  - Drug abuse [Recovered/Resolved]
  - Mydriasis [Recovered/Resolved]

NARRATIVE: CASE EVENT DATE: 20200623
